FAERS Safety Report 20345398 (Version 1)
Quarter: 2022Q1

REPORT INFORMATION
  Report Type: Report from Study
  Country: CA (occurrence: CA)
  Receive Date: 20220118
  Receipt Date: 20220118
  Transmission Date: 20220423
  Serious: Yes (Hospitalization)
  Sender: FDA-Public Use
  Company Number: CA-NOVARTISPH-NVSC2022CA008099

PATIENT
  Sex: Male

DRUGS (1)
  1. VOTRIENT [Suspect]
     Active Substance: PAZOPANIB HYDROCHLORIDE
     Indication: Soft tissue sarcoma
     Dosage: UNK
     Route: 048
     Dates: start: 20211224

REACTIONS (3)
  - Hypotension [Unknown]
  - Malaise [Unknown]
  - Product dose omission issue [Unknown]
